FAERS Safety Report 19718435 (Version 1)
Quarter: 2021Q3

REPORT INFORMATION
  Report Type: Spontaneous
  Country: US (occurrence: US)
  Receive Date: 20210818
  Receipt Date: 20210818
  Transmission Date: 20211014
  Serious: No
  Sender: FDA-Public Use
  Company Number: US-TOLMAR, INC.-21US028039

PATIENT
  Sex: Male

DRUGS (1)
  1. ELIGARD [Suspect]
     Active Substance: LEUPROLIDE ACETATE
     Indication: PROSTATE CANCER METASTATIC
     Dosage: 45 MILLIGRAM

REACTIONS (5)
  - Wrong technique in product usage process [Unknown]
  - Syringe issue [Unknown]
  - Product dose omission issue [Unknown]
  - Injection site pain [Unknown]
  - Intercepted product preparation error [Unknown]
